FAERS Safety Report 9251812 (Version 2)
Quarter: 2014Q1

REPORT INFORMATION
  Report Type: Spontaneous
  Country: US (occurrence: None)
  Receive Date: 20130305
  Receipt Date: 20140306
  Transmission Date: 20141002
  Serious: Yes (Hospitalization, Disabling, Other)
  Sender: FDA-Public Use
  Company Number: 163-21880-12092559

PATIENT
  Age: 86 Year
  Sex: Male

DRUGS (4)
  1. REVLIMID (LENALIDOMIDE) (5 MILLIGRAM, CAPSULES) [Suspect]
     Indication: MYELODYSPLASTIC SYNDROME
     Route: 048
     Dates: start: 20120822, end: 20120912
  2. METOPROLOL (METOPROLOL) [Concomitant]
  3. ASA (ACETYLSALICYLIC ACID) [Concomitant]
  4. TREATMENT FOR SCABIES [Concomitant]

REACTIONS (4)
  - Pleural effusion [None]
  - Haemoglobin decreased [None]
  - Cardiac failure congestive [None]
  - Oedema peripheral [None]
